FAERS Safety Report 10389700 (Version 2)
Quarter: 2014Q4

REPORT INFORMATION
  Report Type: Spontaneous
  Country: US (occurrence: None)
  Receive Date: 20140813
  Receipt Date: 20141014
  Transmission Date: 20150528
  Serious: Yes (Hospitalization)
  Sender: FDA-Public Use
  Company Number: US-000831

PATIENT
  Age: 50 Year
  Sex: Female

DRUGS (3)
  1. HYDROCODONE [Concomitant]
     Active Substance: HYDROCODONE
  2. GATTEX [Suspect]
     Active Substance: TEDUGLUTIDE\WATER
     Indication: SHORT-BOWEL SYNDROME
     Route: 058
     Dates: start: 201312, end: 201407
  3. SOLUTIONS FOR PARENTERAL NUTRITION [Concomitant]
     Active Substance: AMINO ACIDS\DEXTROSE\ELECTROLYTES NOS

REACTIONS (10)
  - Large intestine polyp [None]
  - Hepatic enzyme increased [None]
  - Family stress [None]
  - Drug dose omission [None]
  - Nausea [None]
  - Pancreatitis [None]
  - Proctalgia [None]
  - Vaginal prolapse [None]
  - Emotional disorder [None]
  - Abdominal pain lower [None]

NARRATIVE: CASE EVENT DATE: 20131015
